FAERS Safety Report 12944268 (Version 2)
Quarter: 2016Q4

REPORT INFORMATION
  Report Type: Spontaneous
  Country: IT (occurrence: IT)
  Receive Date: 20161115
  Receipt Date: 20161122
  Transmission Date: 20170207
  Serious: Yes (Other)
  Sender: FDA-Public Use
  Company Number: IT-PFIZER INC-2016525380

PATIENT
  Age: 68 Year
  Sex: Male

DRUGS (5)
  1. IRINOTECAN HCL [Suspect]
     Active Substance: IRINOTECAN HYDROCHLORIDE
     Indication: ADENOCARCINOMA OF COLON
     Dosage: 360 MG, CYCLIC
     Route: 042
     Dates: start: 20160622, end: 20160626
  2. FLUOROURACIL. [Concomitant]
     Active Substance: FLUOROURACIL
     Dosage: 4800 MG, UNK
     Route: 042
     Dates: start: 20160622, end: 20161026
  3. LEVOFOLINIC ACID [Concomitant]
     Active Substance: LEVOLEUCOVORIN
     Indication: ADENOCARCINOMA OF COLON
     Dosage: 400 MG, UNK
     Route: 042
     Dates: start: 20160622, end: 20161022
  4. ERBITUX [Concomitant]
     Active Substance: CETUXIMAB
     Indication: ADENOCARCINOMA OF COLON
     Dosage: 800 MG, UNK
     Route: 042
     Dates: start: 20160622, end: 20161026
  5. FLUOROURACIL. [Concomitant]
     Active Substance: FLUOROURACIL
     Indication: ADENOCARCINOMA OF COLON
     Dosage: 800 MG, UNK
     Route: 040
     Dates: start: 20160622, end: 20161026

REACTIONS (2)
  - Infusion related reaction [Recovering/Resolving]
  - Blood pressure increased [Unknown]

NARRATIVE: CASE EVENT DATE: 20160622
